FAERS Safety Report 18849963 (Version 1)
Quarter: 2021Q1

REPORT INFORMATION
  Report Type: Spontaneous
  Country: US (occurrence: US)
  Receive Date: 20210205
  Receipt Date: 20210205
  Transmission Date: 20210420
  Serious: Yes (Other)
  Sender: FDA-Public Use
  Company Number: US-AMGEN-USASP2021013793

PATIENT
  Age: 32 Year
  Sex: Female

DRUGS (4)
  1. ETHAMBUTOL [Concomitant]
     Active Substance: ETHAMBUTOL HYDROCHLORIDE
     Dosage: UNK
  2. EPOETIN ALFA [Suspect]
     Active Substance: ERYTHROPOIETIN
     Indication: ANAEMIA
     Dosage: UNK
     Route: 065
  3. CLOFAZIMINE [Concomitant]
     Active Substance: CLOFAZIMINE
     Dosage: UNK
  4. FILGRASTIM [Suspect]
     Active Substance: FILGRASTIM
     Indication: NEUTROPENIA
     Dosage: UNK
     Route: 065

REACTIONS (11)
  - Transaminases increased [Unknown]
  - Abdominal pain lower [Unknown]
  - Haematochezia [Unknown]
  - Gastrointestinal wall thickening [Unknown]
  - Anaemia [Unknown]
  - Early satiety [Unknown]
  - Back pain [Unknown]
  - Calcinosis [Unknown]
  - Weight decreased [Unknown]
  - Retinal disorder [Unknown]
  - Abdominal distension [Unknown]

NARRATIVE: CASE EVENT DATE: 1996
